FAERS Safety Report 7741198-7 (Version None)
Quarter: 2011Q3

REPORT INFORMATION
  Report Type: 
  Country: None (occurrence: None)
  Receive Date: 20110909
  Receipt Date: 20110906
  Transmission Date: 20111222
  Serious: Yes (Other)
  Sender: FDA-Public Use
  Company Number: CU-BAYER-2011-082788

PATIENT

DRUGS (1)
  1. ULTRAVIST 150 [Suspect]

REACTIONS (4)
  - FEELING COLD [None]
  - ARTHRALGIA [None]
  - PARAESTHESIA [None]
  - CYANOSIS [None]
